FAERS Safety Report 8352472-8 (Version None)
Quarter: 2012Q2

REPORT INFORMATION
  Report Type: 
  Country: None (occurrence: None)
  Receive Date: 20120511
  Receipt Date: 20120507
  Transmission Date: 20120825
  Serious: Yes (Hospitalization, Other)
  Sender: FDA-Public Use
  Company Number: PHHY2011CA102821

PATIENT
  Sex: Female

DRUGS (1)
  1. ZOLEDRONOC ACID [Suspect]
     Indication: OSTEOPOROSIS
     Dosage: UNK UKN, UNK
     Route: 042
     Dates: start: 20110216

REACTIONS (9)
  - NEUTROPHIL COUNT INCREASED [None]
  - CARBON DIOXIDE ABNORMAL [None]
  - HAEMOGLOBIN DECREASED [None]
  - BLOOD GLUCOSE INCREASED [None]
  - VITAMIN D DECREASED [None]
  - POLYMYOSITIS [None]
  - LYMPHOCYTE COUNT DECREASED [None]
  - BLOOD SODIUM INCREASED [None]
  - ASTHENIA [None]
